FAERS Safety Report 4273036-1 (Version None)
Quarter: 2004Q1

REPORT INFORMATION
  Report Type: 
  Country: None (occurrence: None)
  Receive Date: 20040114
  Receipt Date: 20031230
  Transmission Date: 20041129
  Serious: Yes (Hospitalization)
  Sender: FDA-Public Use
  Company Number: 2003-111325-NL

PATIENT
  Age: 60 Year
  Sex: Female

DRUGS (3)
  1. VECURONIUM BROMIDE [Suspect]
     Route: 042
     Dates: start: 20030721, end: 20030721
  2. PROPOFOL [Concomitant]
  3. SUFENTANIL CITRATE [Concomitant]

REACTIONS (1)
  - ANAPHYLACTIC SHOCK [None]
